FAERS Safety Report 5872012-2 (Version None)
Quarter: 2008Q3

REPORT INFORMATION
  Report Type: 
  Country: None (occurrence: None)
  Receive Date: 20080902
  Receipt Date: 20080827
  Transmission Date: 20090109
  Serious: Yes (Life-Threatening)
  Sender: FDA-Public Use
  Company Number: 2008TJ0209

PATIENT
  Sex: Male

DRUGS (2)
  1. EPINEPHRINE [Suspect]
     Indication: ANAPHYLACTIC REACTION
     Dosage: 0.3 MG SUBCUTANEOUS/INTRAMUSCULAR
     Route: 058
     Dates: start: 20080820, end: 20080820
  2. EPINEPHRINE [Suspect]
     Indication: ANAPHYLACTIC REACTION
     Dosage: 0.3 MG, SUBCUTANEOUS/INTRAMUSCULAR
     Route: 058
     Dates: start: 20080820, end: 20080820

REACTIONS (2)
  - DEVICE MALFUNCTION [None]
  - PHARMACEUTICAL PRODUCT COMPLAINT [None]
